FAERS Safety Report 24257695 (Version 1)
Quarter: 2024Q3

REPORT INFORMATION
  Report Type: Spontaneous
  Country: US (occurrence: US)
  Receive Date: 20240828
  Receipt Date: 20240828
  Transmission Date: 20241017
  Serious: No
  Sender: CHIESI
  Company Number: US-CHIESI-2024CHF04335

PATIENT
  Age: 55 Year
  Sex: Male

DRUGS (1)
  1. ELFABRIO [Suspect]
     Active Substance: PEGUNIGALSIDASE ALFA-IWXJ
     Indication: Product used for unknown indication
     Dosage: UNK, QOW
     Route: 042

REACTIONS (2)
  - Gastrointestinal disorder [Recovered/Resolved]
  - Burning sensation [Recovering/Resolving]
